FAERS Safety Report 17837148 (Version 1)
Quarter: 2020Q2

REPORT INFORMATION
  Report Type: Spontaneous
  Country: FR (occurrence: FR)
  Receive Date: 20200528
  Receipt Date: 20200528
  Transmission Date: 20200714
  Serious: Yes (Other)
  Sender: FDA-Public Use
  Company Number: FR-PFIZER INC-2020208538

PATIENT
  Age: 90 Year
  Sex: Female

DRUGS (3)
  1. PLAQUENIL [Interacting]
     Active Substance: HYDROXYCHLOROQUINE SULFATE
     Indication: CORONAVIRUS INFECTION
     Dosage: 600 MG, 1X/DAY
     Route: 048
     Dates: start: 20200328, end: 20200406
  2. ZITHROMAX [Suspect]
     Active Substance: AZITHROMYCIN DIHYDRATE
     Indication: CORONAVIRUS INFECTION
     Dosage: 250 MG, 1X/DAY
     Route: 048
     Dates: start: 20200328, end: 20200402
  3. TAVANIC [Interacting]
     Active Substance: LEVOFLOXACIN
     Indication: CORONAVIRUS INFECTION
     Dosage: 1000 MG, 1X/DAY
     Route: 048
     Dates: start: 20200328, end: 20200402

REACTIONS (4)
  - Electrocardiogram QT prolonged [Recovering/Resolving]
  - Product use in unapproved indication [Unknown]
  - Drug interaction [Recovering/Resolving]
  - Off label use [Unknown]

NARRATIVE: CASE EVENT DATE: 20200328
